FAERS Safety Report 17149743 (Version 1)
Quarter: 2019Q4

REPORT INFORMATION
  Report Type: Spontaneous
  Country: FR (occurrence: FR)
  Receive Date: 20191213
  Receipt Date: 20191213
  Transmission Date: 20200122
  Serious: Yes (Hospitalization)
  Sender: FDA-Public Use
  Company Number: FR-TEVA-2019-FR-1150444

PATIENT
  Age: 85 Year
  Sex: Male
  Weight: 80 kg

DRUGS (10)
  1. ACICLOVIR MYLAN [Suspect]
     Active Substance: ACYCLOVIR
     Indication: HERPES OPHTHALMIC
     Dosage: 10 MG/KG EVERY 8 HOURS
     Route: 042
     Dates: start: 20190124, end: 20190128
  2. VISMED [Concomitant]
     Active Substance: HYALURONATE SODIUM
  3. CORGARD [Suspect]
     Active Substance: NADOLOL
  4. CHIBRO CADRON, COLLYRE EN FLACON [Suspect]
     Active Substance: DEXAMETHASONE SODIUM PHOSPHATE\NEOMYCIN SULFATE
  5. MYDRIATICUM 0,5 POUR CENT, COLLYRE [Concomitant]
  6. SYMBICORT [Concomitant]
     Active Substance: BUDESONIDE\FORMOTEROL FUMARATE DIHYDRATE
  7. VALSARTAN. [Suspect]
     Active Substance: VALSARTAN
     Indication: HYPERTENSION
     Dosage: 80 MG
     Route: 048
     Dates: start: 20190124, end: 20190129
  8. AUGMENTIN [Concomitant]
     Active Substance: AMOXICILLIN\CLAVULANATE POTASSIUM
  9. OPHTASILOXANE, COLLYRE [Concomitant]
  10. QUINOFREE 1,5 MG/0,5 ML, COLLYRE EN RECIPIENT UNIDOSE [Concomitant]

REACTIONS (1)
  - Acute kidney injury [Recovering/Resolving]

NARRATIVE: CASE EVENT DATE: 20190129
